FAERS Safety Report 13676417 (Version 1)
Quarter: 2017Q2

REPORT INFORMATION
  Report Type: Spontaneous
  Country: US (occurrence: US)
  Receive Date: 20170622
  Receipt Date: 20170622
  Transmission Date: 20170830
  Serious: Yes (Hospitalization)
  Sender: FDA-Public Use
  Company Number: US-AEGERION PHARMACEUTICAL, INC-AEGR003214

PATIENT
  Age: 40 Year
  Sex: Female

DRUGS (1)
  1. MYALEPT [Suspect]
     Active Substance: METRELEPTIN
     Indication: CONGENITAL GENERALISED LIPODYSTROPHY
     Dosage: 10 MG, QD
     Route: 058
     Dates: start: 20160614, end: 20170517

REACTIONS (5)
  - Pancreatic cyst [Unknown]
  - Pancreatitis [Unknown]
  - Blood glucose abnormal [Unknown]
  - Therapy cessation [Unknown]
  - Blood triglycerides abnormal [Unknown]

NARRATIVE: CASE EVENT DATE: 201705
